FAERS Safety Report 8623095-8 (Version None)
Quarter: 2012Q3

REPORT INFORMATION
  Report Type: 
  Country: None (occurrence: None)
  Receive Date: 20120827
  Receipt Date: 20120822
  Transmission Date: 20120928
  Serious: Yes (Hospitalization, Disabling)
  Sender: FDA-Public Use
  Company Number: US-JNJFOC-20120811877

PATIENT
  Sex: Female
  Weight: 53.6 kg

DRUGS (6)
  1. REMICADE [Suspect]
     Indication: INFLAMMATORY BOWEL DISEASE
     Route: 042
     Dates: start: 20100504, end: 20110601
  2. CHOLECALCIFEROL [Concomitant]
  3. ACETAMINOPHEN [Concomitant]
  4. MIRALAX [Concomitant]
  5. ANTIBIOTICS FOR IBD [Concomitant]
  6. BACTROBAN [Concomitant]

REACTIONS (1)
  - LUPUS-LIKE SYNDROME [None]
